FAERS Safety Report 5167105-1 (Version None)
Quarter: 2006Q4

REPORT INFORMATION
  Report Type: 
  Country: None (occurrence: None)
  Receive Date: 20061207
  Receipt Date: 20061004
  Transmission Date: 20070319
  Serious: Yes (Hospitalization)
  Sender: FDA-Public Use
  Company Number: DE-GLAXOSMITHKLINE-B0439593B

PATIENT
  Sex: Female
  Weight: 73 kg

DRUGS (3)
  1. TOPOTECAN [Suspect]
     Indication: OVARIAN CANCER
     Dosage: 7MG WEEKLY
     Route: 042
     Dates: start: 20060821, end: 20060905
  2. KEVATRIL [Concomitant]
     Dosage: 2MG WEEKLY
     Route: 042
     Dates: start: 20060829, end: 20060905
  3. FORTECORTIN [Concomitant]
     Dosage: 4MG WEEKLY
     Route: 042
     Dates: start: 20060829, end: 20060905

REACTIONS (2)
  - FATIGUE [None]
  - PERIPHERAL SENSORY NEUROPATHY [None]
